FAERS Safety Report 18077507 (Version 1)
Quarter: 2020Q3

REPORT INFORMATION
  Report Type: Report from Study
  Country: KR (occurrence: KR)
  Receive Date: 20200728
  Receipt Date: 20200728
  Transmission Date: 20201103
  Serious: Yes (Death, Hospitalization)
  Sender: FDA-Public Use
  Company Number: KR-CELLTRION INC.-2020KR024703

PATIENT

DRUGS (8)
  1. TRUXIMA [Suspect]
     Active Substance: RITUXIMAB-ABBS
     Indication: DIFFUSE LARGE B-CELL LYMPHOMA
     Dosage: 700 MG EVERY 3 WEEKS
     Route: 042
     Dates: start: 20200303, end: 20200303
  2. WINUF PERI [Concomitant]
     Active Substance: AMINO ACIDS\DEXTROSE\ELECTROLYTES NOS\SOYBEAN OIL\VITAMINS
     Indication: PROPHYLAXIS
     Dosage: 1085 ML, QD
     Route: 042
     Dates: start: 20200312, end: 20200312
  3. SMECTA [Concomitant]
     Active Substance: MONTMORILLONITE
     Indication: PROPHYLAXIS AGAINST DIARRHOEA
     Dosage: 1 DF (PACK), QD
     Route: 048
     Dates: start: 20200312, end: 20200313
  4. CHOP [Suspect]
     Active Substance: CYCLOPHOSPHAMIDE\DOXORUBICIN\PREDNISONE\VINCRISTINE
     Indication: DIFFUSE LARGE B-CELL LYMPHOMA
     Dosage: UNK
     Dates: start: 20200303, end: 20200303
  5. TARGIN PR [Concomitant]
     Indication: DIFFUSE LARGE B-CELL LYMPHOMA
     Dosage: 1 DF (TAB), QD
     Route: 048
     Dates: start: 20200312, end: 20200314
  6. ILYANG DICETEL [Concomitant]
     Indication: PROPHYLAXIS
     Dosage: 1 DF (TAB), TID
     Route: 048
     Dates: start: 20200312, end: 20200314
  7. SEPTRIN [Concomitant]
     Active Substance: SULFAMETHOXAZOLE\TRIMETHOPRIM
     Indication: DIFFUSE LARGE B-CELL LYMPHOMA
     Dosage: 1 DF (TAB), QD
     Route: 048
     Dates: start: 20200302, end: 20200315
  8. PANTOLOC [PANTOPRAZOLE] [Concomitant]
     Active Substance: PANTOPRAZOLE SODIUM
     Indication: PROPHYLAXIS
     Dosage: 1 DF (AMP), QD
     Route: 042
     Dates: start: 20200312, end: 20200313

REACTIONS (1)
  - Septic shock [Fatal]

NARRATIVE: CASE EVENT DATE: 20200310
